FAERS Safety Report 20016810 (Version 1)
Quarter: 2021Q4

REPORT INFORMATION
  Report Type: Spontaneous
  Country: US (occurrence: None)
  Receive Date: 20211105
  Receipt Date: 20211105
  Transmission Date: 20220303
  Serious: Yes (Other)
  Sender: FDA-Public Use
  Company Number: None

PATIENT
  Age: 39 Year
  Sex: Female

DRUGS (1)
  1. REGEN-COV [Suspect]
     Active Substance: CASIRIVIMAB\IMDEVIMAB
     Indication: COVID-19
     Dates: start: 20210930, end: 20210930

REACTIONS (12)
  - Faeces discoloured [None]
  - Infusion related reaction [None]
  - Oropharyngeal pain [None]
  - Chills [None]
  - Pain [None]
  - Musculoskeletal chest pain [None]
  - Headache [None]
  - Nausea [None]
  - Decreased appetite [None]
  - Tongue discomfort [None]
  - Abdominal pain upper [None]
  - Insomnia [None]

NARRATIVE: CASE EVENT DATE: 20211020
